FAERS Safety Report 10567773 (Version 1)
Quarter: 2014Q4

REPORT INFORMATION
  Report Type: Spontaneous
  Country: US (occurrence: None)
  Receive Date: 20141028
  Receipt Date: 20141028
  Transmission Date: 20150529
  Serious: Yes (Hospitalization)
  Sender: FDA-Public Use
  Company Number: QR3835-03

PATIENT
  Age: 42 Year
  Sex: Female

DRUGS (5)
  1. GAMMAPLEX [Suspect]
     Active Substance: HUMAN IMMUNOGLOBULIN G
     Indication: PRIMARY IMMUNODEFICIENCY SYNDROME
     Dosage: ONCE WEEKLY
     Route: 042
     Dates: start: 20141002
  2. BENADRYL [Concomitant]
     Active Substance: DIPHENHYDRAMINE HYDROCHLORIDE
  3. STEROIDS [Concomitant]
     Active Substance: UNSPECIFIED INGREDIENT
  4. TYLENOL [Concomitant]
     Active Substance: ACETAMINOPHEN
  5. FROVAR [Concomitant]

REACTIONS (20)
  - Eye swelling [None]
  - Bradyphrenia [None]
  - Neck pain [None]
  - Fluid overload [None]
  - Night sweats [None]
  - Blepharospasm [None]
  - Facial spasm [None]
  - Transfusion reaction [None]
  - Migraine [None]
  - Dystonia [None]
  - Stress [None]
  - Infusion related reaction [None]
  - Muscle twitching [None]
  - Brain oedema [None]
  - Feeling cold [None]
  - Vitreous floaters [None]
  - Dry eye [None]
  - Headache [None]
  - Aphasia [None]
  - Head titubation [None]

NARRATIVE: CASE EVENT DATE: 20141002
